FAERS Safety Report 4829799-7 (Version None)
Quarter: 2005Q4

REPORT INFORMATION
  Report Type: 
  Country: None (occurrence: None)
  Receive Date: 20051028
  Receipt Date: 20050712
  Transmission Date: 20060501
  Serious: No
  Sender: FDA-Public Use
  Company Number: COT_0135_2005

PATIENT
  Age: 52 Year
  Sex: Female
  Weight: 70.3075 kg

DRUGS (10)
  1. VENTAVIS [Suspect]
     Indication: PULMONARY HYPERTENSION
     Dosage: 2.5 MCG 7XD IH
     Route: 055
     Dates: start: 20050617
  2. TRACLEER [Concomitant]
  3. COUMADIN [Concomitant]
  4. CARTIA XT [Concomitant]
  5. ACCUPRIL [Concomitant]
  6. FOLIC ACID [Concomitant]
  7. LASIX [Concomitant]
  8. DIGOXIN [Concomitant]
  9. K-DUR 10 [Concomitant]
  10. VITAMIN B COMPLEX CAP [Concomitant]

REACTIONS (1)
  - EPISTAXIS [None]
